FAERS Safety Report 8256851-9 (Version None)
Quarter: 2012Q2

REPORT INFORMATION
  Report Type: 
  Country: None (occurrence: None)
  Receive Date: 20120403
  Receipt Date: 20120329
  Transmission Date: 20120825
  Serious: Yes (Death)
  Sender: FDA-Public Use
  Company Number: CO-PFIZER INC-2012081589

PATIENT
  Sex: Male

DRUGS (7)
  1. LIPITOR [Suspect]
     Indication: DYSLIPIDAEMIA
     Dosage: 10 MG, 1X/DAY
     Dates: start: 20040906
  2. AMLODIPINE BESILATE [Concomitant]
     Dosage: 5 MG, 1X/DAY
  3. AMANTADINE SULFATE [Concomitant]
     Dosage: 100 MG, 2X/DAY
  4. HYDROCHLOROTHIAZIDE [Concomitant]
     Dosage: UNK/ 1 DAILY
  5. LOSARTAN [Concomitant]
     Dosage: 50 MG, 2X/DAY
  6. ASPIRIN [Concomitant]
     Dosage: 100 MG, 1X/DAY
  7. DIGOXIN [Concomitant]
     Dosage: 25 DROPS OF ORAL SOLUTION 0.75 MG DAILY
     Route: 048

REACTIONS (1)
  - INFARCTION [None]
